FAERS Safety Report 19252348 (Version 1)
Quarter: 2021Q2

REPORT INFORMATION
  Report Type: Spontaneous
  Country: US (occurrence: US)
  Receive Date: 20210513
  Receipt Date: 20210513
  Transmission Date: 20210717
  Serious: No
  Sender: FDA-Public Use
  Company Number: None

PATIENT
  Age: 59 Year
  Sex: Male
  Weight: 84 kg

DRUGS (1)
  1. OLANZAPINE. [Suspect]
     Active Substance: OLANZAPINE
     Dates: end: 20201025

REACTIONS (6)
  - Chest pain [None]
  - Fibrin D dimer increased [None]
  - Cough [None]
  - Dyspnoea [None]
  - Atelectasis [None]
  - Lung disorder [None]

NARRATIVE: CASE EVENT DATE: 20201028
